FAERS Safety Report 19650670 (Version 3)
Quarter: 2021Q3

REPORT INFORMATION
  Report Type: Spontaneous
  Country: BR (occurrence: BR)
  Receive Date: 20210803
  Receipt Date: 20210825
  Transmission Date: 20211014
  Serious: Yes (Life-Threatening, Hospitalization)
  Sender: FDA-Public Use
  Company Number: BR-TAKEDA-2021TUS048282

PATIENT
  Age: 34 Year
  Sex: Male
  Weight: 78 kg

DRUGS (3)
  1. ALPRAZOLAM. [Concomitant]
     Active Substance: ALPRAZOLAM
     Dosage: UNK UNK, QD
     Route: 065
  2. BUPROPION. [Concomitant]
     Active Substance: BUPROPION
     Dosage: UNK UNK, QD
     Route: 065
  3. DEXILANT [Suspect]
     Active Substance: DEXLANSOPRAZOLE
     Indication: PRODUCT USED FOR UNKNOWN INDICATION
     Dosage: 70 MILLIGRAM, QD
     Route: 065
     Dates: end: 20210724

REACTIONS (8)
  - Blood pressure increased [Unknown]
  - Dyspnoea [Unknown]
  - Chronic gastritis [Recovering/Resolving]
  - Heart rate increased [Unknown]
  - Throat tightness [Unknown]
  - Extra dose administered [Unknown]
  - Chest discomfort [Unknown]
  - Adverse event [Unknown]

NARRATIVE: CASE EVENT DATE: 20210724
